FAERS Safety Report 8729452 (Version 3)
Quarter: 2012Q4

REPORT INFORMATION
  Report Type: 
  Country: US (occurrence: US)
  Receive Date: 20120817
  Receipt Date: 20121109
  Transmission Date: 20130627
  Serious: Yes (Death, Other)
  Sender: FDA-Public Use
  Company Number: US-JNJFOC-20120806334

PATIENT
  Sex: Female
  Weight: 85.73 kg

DRUGS (13)
  1. REMICADE [Suspect]
     Indication: PSORIATIC ARTHROPATHY
     Dosage: Frequency: every 6-8 weeks, total 29 infusions
     Route: 042
     Dates: start: 20080114, end: 20110829
  2. METHOTREXATE [Concomitant]
     Route: 065
  3. PREDNISONE [Concomitant]
     Route: 065
  4. CYCLOSPORIN [Concomitant]
     Route: 065
  5. AZATHIOPRINE [Concomitant]
     Route: 065
  6. 6 MERCAPTOPURINE [Concomitant]
     Route: 065
  7. DIOVAN [Concomitant]
     Indication: HYPERTENSION
     Route: 065
  8. COUMADIN [Concomitant]
     Indication: ATRIAL FIBRILLATION
     Route: 065
  9. LIDEX [Concomitant]
     Route: 065
  10. COREG [Concomitant]
     Route: 065
  11. LEXAPRO [Concomitant]
     Route: 065
  12. SYNTHROID [Concomitant]
     Route: 065
  13. CLARITIN [Concomitant]
     Route: 065

REACTIONS (2)
  - Aspergillosis [Fatal]
  - Central nervous system lymphoma [Not Recovered/Not Resolved]
